FAERS Safety Report 7078702-0 (Version None)
Quarter: 2010Q4

REPORT INFORMATION
  Report Type: 
  Country: None (occurrence: None)
  Receive Date: 20101101
  Receipt Date: 20101101
  Transmission Date: 20110411
  Serious: Yes (Hospitalization)
  Sender: FDA-Public Use
  Company Number: None

PATIENT
  Age: 23 Year
  Sex: Male
  Weight: 72.5755 kg

DRUGS (1)
  1. GABAPENTIN [Suspect]
     Dosage: 300MG TID PO
     Route: 048
     Dates: start: 20101015, end: 20101024

REACTIONS (7)
  - ARTHRALGIA [None]
  - CONVULSION [None]
  - HEADACHE [None]
  - NAUSEA [None]
  - RETCHING [None]
  - SYNCOPE [None]
  - VOMITING [None]
